FAERS Safety Report 22033650 (Version 1)
Quarter: 2023Q1

REPORT INFORMATION
  Report Type: Spontaneous
  Country: JP (occurrence: None)
  Receive Date: 20230224
  Receipt Date: 20230224
  Transmission Date: 20230418
  Serious: Yes (Hospitalization, Other)
  Sender: FDA-Public Use
  Company Number: 2023A041351

PATIENT
  Age: 74 Year
  Sex: Male

DRUGS (3)
  1. OSIMERTINIB [Suspect]
     Active Substance: OSIMERTINIB
     Indication: Lung adenocarcinoma stage I
     Route: 048
     Dates: start: 201906
  2. OSIMERTINIB [Suspect]
     Active Substance: OSIMERTINIB
     Indication: Lung adenocarcinoma stage I
     Route: 048
  3. APIXABAN [Concomitant]
     Active Substance: APIXABAN

REACTIONS (3)
  - Embolism venous [Unknown]
  - Metastases to lymph nodes [Unknown]
  - Fatigue [Unknown]
